FAERS Safety Report 24288423 (Version 1)
Quarter: 2024Q3

REPORT INFORMATION
  Report Type: Other
  Country: PT (occurrence: PT)
  Receive Date: 20240906
  Receipt Date: 20240906
  Transmission Date: 20241017
  Serious: Yes (Hospitalization, Other)
  Sender: APPCO PHARMA
  Company Number: PT-Appco Pharma LLC-2161291

PATIENT
  Age: 73 Year
  Sex: Female

DRUGS (1)
  1. HYDROXYCHLOROQUINE SULFATE [Suspect]
     Active Substance: HYDROXYCHLOROQUINE SULFATE
     Indication: Systemic lupus erythematosus
     Route: 065

REACTIONS (5)
  - Syncope [Unknown]
  - Bundle branch block right [Unknown]
  - Electrocardiogram ST segment elevation [Unknown]
  - Phospholipidosis [Unknown]
  - Cardiomyopathy [Unknown]
